FAERS Safety Report 10211112 (Version 1)
Quarter: 2014Q2

REPORT INFORMATION
  Report Type: Spontaneous
  Country: GB (occurrence: GB)
  Receive Date: 20140602
  Receipt Date: 20140602
  Transmission Date: 20141212
  Serious: Yes (Other)
  Sender: FDA-Public Use
  Company Number: PHHY2014GB065393

PATIENT
  Age: 57 Year
  Sex: Male
  Weight: 71 kg

DRUGS (3)
  1. PARACETAMOL [Suspect]
     Indication: PAIN
     Dosage: 1 G, QID
     Route: 048
  2. PARACETAMOL [Suspect]
     Dosage: 1 G, UNK
     Route: 042
  3. LANSOPRAZOLE [Concomitant]

REACTIONS (1)
  - Hyperhidrosis [Recovered/Resolved]
